FAERS Safety Report 15983195 (Version 1)
Quarter: 2019Q1

REPORT INFORMATION
  Report Type: Report from Study
  Country: None (occurrence: US)
  Receive Date: 20190220
  Receipt Date: 20190220
  Transmission Date: 20190418
  Serious: Yes (Hospitalization)
  Sender: FDA-Public Use
  Company Number: US-ABBVIE-19S-163-2669253-00

PATIENT
  Age: 33 Year
  Sex: Female

DRUGS (2)
  1. DUOPA [Suspect]
     Active Substance: CARBIDOPA\LEVODOPA
     Indication: PARKINSON^S DISEASE
     Route: 050
     Dates: start: 20190103, end: 201902
  2. CARBIDOPA - LEVODOPA [Concomitant]
     Indication: PARKINSON^S DISEASE

REACTIONS (6)
  - Disorientation [Recovered/Resolved]
  - Medical device change [Recovered/Resolved]
  - Device occlusion [Recovered/Resolved]
  - Anaesthetic complication [Recovered/Resolved]
  - Confusional state [Recovered/Resolved]
  - Abnormal behaviour [Recovered/Resolved]

NARRATIVE: CASE EVENT DATE: 2019
